FAERS Safety Report 5402910-5 (Version None)
Quarter: 2007Q3

REPORT INFORMATION
  Report Type: 
  Country: None (occurrence: None)
  Receive Date: 20070801
  Receipt Date: 20070706
  Transmission Date: 20080115
  Serious: No
  Sender: FDA-Public Use
  Company Number: US-JNJFOC-20070702023

PATIENT
  Age: 23 Year
  Sex: Male

DRUGS (4)
  1. INVEGA [Suspect]
     Indication: SCHIZOPHRENIA
     Route: 065
  2. RISPERDAL [Suspect]
     Indication: SCHIZOPHRENIA
  3. KLONOPIN [Concomitant]
  4. COGENTIN [Concomitant]

REACTIONS (5)
  - ABASIA [None]
  - DECREASED APPETITE [None]
  - DYSTONIA [None]
  - MUSCULOSKELETAL STIFFNESS [None]
  - PYREXIA [None]
